FAERS Safety Report 23799752 (Version 1)
Quarter: 2024Q2

REPORT INFORMATION
  Report Type: Spontaneous
  Country: US (occurrence: None)
  Receive Date: 20240429
  Receipt Date: 20240429
  Transmission Date: 20240716
  Serious: No
  Sender: FDA-Public Use
  Company Number: None

PATIENT
  Sex: Male

DRUGS (11)
  1. DIMETHYL FUMARATE [Suspect]
     Active Substance: DIMETHYL FUMARATE
     Indication: Multiple sclerosis
     Route: 048
     Dates: start: 20210608
  2. AMLODIPINE [Concomitant]
     Active Substance: AMLODIPINE BESYLATE
  3. ASPIRIN [Concomitant]
     Active Substance: ASPIRIN
  4. ASPIRIN LOW TAB 81MG [Concomitant]
  5. AZELASTINE SPR [Concomitant]
  6. CLOTRIM/BETA CRE DIPROP [Concomitant]
  7. COLCHICINE TAB [Concomitant]
  8. DONEPEZIL TAB 10 MG [Concomitant]
  9. DORZOLAMIDE [Concomitant]
     Active Substance: DORZOLAMIDE
  10. FUROSEMIDE [Concomitant]
     Active Substance: FUROSEMIDE
  11. INDOMETHACIN [Concomitant]
     Active Substance: INDOMETHACIN

REACTIONS (3)
  - Gout [None]
  - Ankle fracture [None]
  - Fall [None]
